FAERS Safety Report 18109526 (Version 1)
Quarter: 2020Q3

REPORT INFORMATION
  Report Type: Report from Study
  Country: US (occurrence: US)
  Receive Date: 20200804
  Receipt Date: 20200804
  Transmission Date: 20201103
  Serious: Yes (Other)
  Sender: FDA-Public Use
  Company Number: US-ASTRAZENECA-2020SE93213

PATIENT
  Age: 61 Year

DRUGS (2)
  1. DURVALUMAB. [Suspect]
     Active Substance: DURVALUMAB
     Indication: NON-SMALL CELL LUNG CANCER STAGE IIIB
     Dosage: 10 MG/KG EVERY 2 WEEKS
     Route: 042
  2. CARBOPLATIN/PACLITAXEL [Interacting]
     Active Substance: CARBOPLATIN\PACLITAXEL
     Indication: NON-SMALL CELL LUNG CANCER STAGE IIIB
     Route: 065

REACTIONS (2)
  - Radiation interaction [Recovered/Resolved]
  - Radiation pneumonitis [Recovered/Resolved]
